FAERS Safety Report 8543153-6 (Version None)
Quarter: 2012Q3

REPORT INFORMATION
  Report Type: 
  Country: None (occurrence: None)
  Receive Date: 20120727
  Receipt Date: 20120717
  Transmission Date: 20120928
  Serious: Yes (Hospitalization, Other)
  Sender: FDA-Public Use
  Company Number: CH-CELGENEUS-151-21880-12062715

PATIENT
  Sex: Female
  Weight: 66 kg

DRUGS (9)
  1. REVLIMID [Suspect]
     Indication: ACUTE MYELOID LEUKAEMIA
     Dosage: 20 MILLIGRAM
     Route: 048
     Dates: start: 20120522
  2. REVLIMID [Suspect]
     Dosage: 20 MILLIGRAM
     Route: 048
     Dates: start: 20120622, end: 20120709
  3. CYTARABINE [Suspect]
     Indication: ACUTE MYELOID LEUKAEMIA
     Dosage: 348 MILLIGRAM
     Route: 041
     Dates: start: 20120522
  4. CYTARABINE [Suspect]
     Dosage: 3440 MILLIGRAM
     Route: 041
     Dates: start: 20120622
  5. NOXAFIL [Concomitant]
     Indication: PROPHYLAXIS
     Dosage: 40 MILLIGRAM
     Route: 048
     Dates: start: 20120527
  6. LORAZEPAM [Concomitant]
     Indication: ANXIETY
     Route: 048
     Dates: start: 20120630, end: 20120709
  7. DAUNORUBICIN HCL [Suspect]
     Indication: ACUTE MYELOID LEUKAEMIA
     Dosage: 78.3 MILLIGRAM
     Route: 041
     Dates: start: 20120522
  8. VALTREX [Concomitant]
     Indication: PROPHYLAXIS
     Dosage: 500 MILLIGRAM
     Route: 048
     Dates: start: 20120524
  9. POTASSIUM CHLORIDE [Concomitant]
     Dosage: 30 MILLIMOLE
     Route: 048
     Dates: start: 20120614

REACTIONS (2)
  - JOINT SWELLING [None]
  - CELLULITIS [None]
